FAERS Safety Report 10078812 (Version 2)
Quarter: 2014Q2

REPORT INFORMATION
  Report Type: Spontaneous
  Country: US (occurrence: US)
  Receive Date: 20140415
  Receipt Date: 20140428
  Transmission Date: 20141212
  Serious: Yes (Hospitalization, Other)
  Sender: FDA-Public Use
  Company Number: US-PFIZER INC-2014103970

PATIENT
  Age: 47 Year
  Sex: Female
  Weight: 81.63 kg

DRUGS (6)
  1. ALPRAZOLAM [Suspect]
     Indication: ANXIETY
     Dosage: 1 MG, 2X/DAY
     Dates: start: 2012
  2. MOTRIN [Suspect]
     Dosage: UNK
  3. NAPROXEN SODIUM [Suspect]
     Indication: ANTIINFLAMMATORY THERAPY
     Dosage: 500 MG, 3X/DAY
     Dates: end: 20121214
  4. SERTRALINE [Concomitant]
     Indication: DEPRESSION
     Dosage: UNK
  5. VICODIN [Concomitant]
     Indication: PAIN
     Dosage: UNK
  6. PERCOCET [Concomitant]
     Indication: PAIN
     Dosage: UNK

REACTIONS (1)
  - Ulcer [Unknown]
